FAERS Safety Report 23215713 (Version 3)
Quarter: 2024Q4

REPORT INFORMATION
  Report Type: Report from Study
  Country: US (occurrence: US)
  Receive Date: 20231122
  Receipt Date: 20241230
  Transmission Date: 20250114
  Serious: Yes (Hospitalization, Other)
  Sender: ABBVIE
  Company Number: US-ABBVIE-5498817

PATIENT
  Sex: Female

DRUGS (2)
  1. RINVOQ [Suspect]
     Active Substance: UPADACITINIB
     Indication: Rheumatoid arthritis
     Dosage: LAST ADMIN DATE: FEB 2022
     Route: 048
     Dates: start: 20220207
  2. RINVOQ [Suspect]
     Active Substance: UPADACITINIB
     Indication: Rheumatoid arthritis
     Route: 048
     Dates: start: 20220222

REACTIONS (6)
  - Meningioma [Not Recovered/Not Resolved]
  - Volume blood decreased [Unknown]
  - Ulcer haemorrhage [Recovered/Resolved]
  - Pain [Recovering/Resolving]
  - Syncope [Unknown]
  - Fatigue [Recovering/Resolving]
